FAERS Safety Report 20364512 (Version 4)
Quarter: 2022Q1

REPORT INFORMATION
  Report Type: Report from Study
  Country: MA (occurrence: MA)
  Receive Date: 20220122
  Receipt Date: 20220302
  Transmission Date: 20220424
  Serious: Yes (Other)
  Sender: FDA-Public Use
  Company Number: MA-NOVARTISPH-NVSC2021MA138568

PATIENT
  Sex: Female

DRUGS (1)
  1. COSENTYX [Suspect]
     Active Substance: SECUKINUMAB
     Indication: Ankylosing spondylitis
     Dosage: 150 MG, QMO
     Route: 058
     Dates: start: 20210216

REACTIONS (23)
  - Blindness [Unknown]
  - Tinnitus [Unknown]
  - Ear infection [Unknown]
  - Blood cholesterol increased [Unknown]
  - Hypertension [Unknown]
  - Eye injury [Unknown]
  - Oral disorder [Unknown]
  - Gingival discomfort [Unknown]
  - Purulence [Unknown]
  - Chills [Unknown]
  - Lacrimation increased [Unknown]
  - Ear pain [Unknown]
  - Eye pain [Unknown]
  - Oral pain [Unknown]
  - Headache [Not Recovered/Not Resolved]
  - Vision blurred [Unknown]
  - Dizziness [Unknown]
  - Pain [Unknown]
  - Musculoskeletal discomfort [Unknown]
  - Limb discomfort [Unknown]
  - Ocular hyperaemia [Unknown]
  - Eye allergy [Unknown]
  - Drug ineffective [Unknown]

NARRATIVE: CASE EVENT DATE: 20220210
